FAERS Safety Report 4490922-8 (Version None)
Quarter: 2004Q4

REPORT INFORMATION
  Report Type: 
  Country: None (occurrence: None)
  Receive Date: 20041027
  Receipt Date: 20041013
  Transmission Date: 20050328
  Serious: Yes (Hospitalization)
  Sender: FDA-Public Use
  Company Number: 2004-BP-09135BP

PATIENT
  Age: 75 Year
  Sex: Male

DRUGS (5)
  1. SPIRIVA [Suspect]
     Indication: CHRONIC OBSTRUCTIVE AIRWAYS DISEASE
     Dosage: 18 MCG (18 MCG), IH
     Route: 055
     Dates: start: 20040924
  2. CELEXA [Suspect]
     Indication: ANXIETY
  3. ALBUTEROL [Concomitant]
  4. FLOVENT [Concomitant]
  5. COMBIVENT [Concomitant]

REACTIONS (3)
  - DYSPNOEA EXACERBATED [None]
  - PNEUMONIA [None]
  - TREMOR [None]
